FAERS Safety Report 4708013-7 (Version None)
Quarter: 2005Q3

REPORT INFORMATION
  Report Type: 
  Country: None (occurrence: None)
  Receive Date: 20050707
  Receipt Date: 20050629
  Transmission Date: 20060218
  Serious: Yes (Hospitalization)
  Sender: FDA-Public Use
  Company Number: US-BRISTOL-MYERS SQUIBB COMPANY-13020698

PATIENT
  Age: 66 Year
  Sex: Female
  Weight: 72 kg

DRUGS (9)
  1. CETUXIMAB [Suspect]
     Indication: NON-SMALL CELL LUNG CANCER
     Dosage: INITIAL TX DATE: 28-FEB-05.  8383 MG:TOTAL DOSE ADM THIS COURSE.
     Route: 042
     Dates: start: 20050620, end: 20050620
  2. TAXOL [Suspect]
     Indication: NON-SMALL CELL LUNG CANCER
     Dosage: CONSOLIDATION PHASE: 200 MG/M2 OVER 3 HRS EVERY 3 WEEKS IN THE NEXT 6 WKS (WEEKS 12 AND 15).
     Route: 042
  3. CARBOPLATIN [Suspect]
     Indication: NON-SMALL CELL LUNG CANCER
     Dosage: INITIAL TX DATE:28-FEB-05.  CONSOLIDATION PHASE: 490 MG OVER 30 MIN EVERY 3 WKS FOR NEXT 6 WKS.
     Route: 042
  4. RADIATION THERAPY [Suspect]
     Indication: NON-SMALL CELL LUNG CANCER
     Dosage: EXTERNAL BEAM, 3D, 63 GY, NUMBER OF FRACTIONS: 35, NUMBER OF ELASPSED DAYS: 0
     Dates: start: 20050422, end: 20050422
  5. FERROUS SULFATE TAB [Suspect]
  6. MULTI-VITAMIN [Concomitant]
  7. MAGNESIUM [Concomitant]
  8. POTASSIUM CHLORIDE [Concomitant]
  9. MYCOSTATIN [Concomitant]

REACTIONS (4)
  - CHEST PAIN [None]
  - DYSPHAGIA [None]
  - FEBRILE NEUTROPENIA [None]
  - HYPOMAGNESAEMIA [None]
